FAERS Safety Report 9725667 (Version 2)
Quarter: 2013Q4

REPORT INFORMATION
  Report Type: Spontaneous
  Country: JP (occurrence: JP)
  Receive Date: 20131203
  Receipt Date: 20131203
  Transmission Date: 20140711
  Serious: Yes (Hospitalization)
  Sender: FDA-Public Use
  Company Number: JP-ASTRAZENECA-2013SE66576

PATIENT
  Age: 70 Year
  Sex: Male

DRUGS (2)
  1. SYMBICORT TURBUHALER [Suspect]
     Indication: ASTHMA
     Dosage: UNKNOWN DOSE AND FREQUENCY
     Route: 055
  2. CHINESE HERBAL MEDICINE [Concomitant]

REACTIONS (1)
  - Adrenal suppression [Unknown]
